FAERS Safety Report 16509423 (Version 1)
Quarter: 2019Q3

REPORT INFORMATION
  Report Type: Spontaneous
  Country: US (occurrence: US)
  Receive Date: 20190701
  Receipt Date: 20190701
  Transmission Date: 20191004
  Serious: No
  Sender: FDA-Public Use
  Company Number: None

PATIENT
  Age: 86 Year
  Sex: Female
  Weight: 56.25 kg

DRUGS (8)
  1. ONE-A-DAY NOS [Concomitant]
     Active Substance: MINERALS\VITAMINS
  2. ORAL ANTACID [Concomitant]
  3. TIMOLOL. [Concomitant]
     Active Substance: TIMOLOL
  4. LUMIGAN [Concomitant]
     Active Substance: BIMATOPROST
  5. AZOPT [Concomitant]
     Active Substance: BRINZOLAMIDE
  6. RHOPRESSA [Suspect]
     Active Substance: NETARSUDIL MESYLATE
     Indication: GLAUCOMA
     Dosage: ?          QUANTITY:1 DROP(S);?
     Route: 047
     Dates: start: 20190517, end: 20190630
  7. BABY ASPIRIN [Concomitant]
     Active Substance: ASPIRIN
  8. GLUCOSAMINE CHONDROITIN [Concomitant]
     Active Substance: CHONDROITIN SULFATE (BOVINE)\GLUCOSAMINE HYDROCHLORIDE

REACTIONS (2)
  - Ocular hyperaemia [None]
  - Eye haemorrhage [None]

NARRATIVE: CASE EVENT DATE: 20190627
